FAERS Safety Report 7105187-8 (Version None)
Quarter: 2010Q4

REPORT INFORMATION
  Report Type: 
  Country: None (occurrence: None)
  Receive Date: 20101116
  Receipt Date: 20101112
  Transmission Date: 20110411
  Serious: Yes (Life-Threatening)
  Sender: FDA-Public Use
  Company Number: GB-ASTRAZENECA-2010SE54128

PATIENT
  Sex: Male

DRUGS (10)
  1. ATENOLOL [Suspect]
     Route: 048
     Dates: start: 20010110
  2. RAMIPRIL [Suspect]
     Route: 048
     Dates: start: 20061001, end: 20101022
  3. ROSUVASTATIN [Suspect]
     Indication: HYPERCHOLESTEROLAEMIA
     Route: 048
     Dates: start: 20090101
  4. DICLOFENAC SODIUM [Suspect]
     Indication: PAIN
     Route: 048
  5. HYDROXYCHLOROQUINE [Suspect]
     Indication: SYSTEMIC LUPUS ERYTHEMATOSUS
     Route: 065
     Dates: start: 20100101
  6. PREDNISOLONE [Suspect]
     Indication: SYSTEMIC LUPUS ERYTHEMATOSUS
     Route: 048
     Dates: start: 20010101
  7. ALENDRONIC ACID [Concomitant]
     Indication: OSTEOPOROSIS
     Route: 048
     Dates: start: 20100701
  8. ASPIRIN [Concomitant]
     Route: 048
     Dates: start: 20060101
  9. CALCICHEW [Concomitant]
     Route: 048
  10. MYCOPHENOLATE MOFETIL [Concomitant]
     Route: 048

REACTIONS (1)
  - ANGIOEDEMA [None]
